FAERS Safety Report 7101571-7 (Version None)
Quarter: 2010Q4

REPORT INFORMATION
  Report Type: 
  Country: None (occurrence: None)
  Receive Date: 20101115
  Receipt Date: 20101110
  Transmission Date: 20110411
  Serious: Yes (Other)
  Sender: FDA-Public Use
  Company Number: DE-PFIZER INC-2010144817

PATIENT
  Age: 68 Year
  Sex: Female

DRUGS (1)
  1. SORTIS [Suspect]
     Dosage: 10 MG, 1X/DAY
     Dates: start: 20100701

REACTIONS (1)
  - OSTEONECROSIS [None]
